FAERS Safety Report 17825835 (Version 2)
Quarter: 2020Q2

REPORT INFORMATION
  Report Type: Report from Study
  Country: US (occurrence: US)
  Receive Date: 20200526
  Receipt Date: 20200615
  Transmission Date: 20200714
  Serious: Yes (Hospitalization)
  Sender: FDA-Public Use
  Company Number: US-ACTELION-A-US2019-192472

PATIENT
  Age: 8 Year
  Sex: Male
  Weight: 18.59 kg

DRUGS (1)
  1. TRACLEER [Suspect]
     Active Substance: BOSENTAN
     Indication: PULMONARY ARTERIAL HYPERTENSION
     Dosage: 32 MG, BID
     Route: 048
     Dates: start: 201906

REACTIONS (7)
  - Pneumothorax [Unknown]
  - Incorrect product dosage form administered [Unknown]
  - Asthma [Unknown]
  - Cardiac operation [Unknown]
  - Seizure [Unknown]
  - Catheterisation cardiac [Unknown]
  - Cerebrovascular accident [Unknown]

NARRATIVE: CASE EVENT DATE: 20200514
